FAERS Safety Report 24759796 (Version 2)
Quarter: 2024Q4

REPORT INFORMATION
  Report Type: Report from Study
  Country: IE (occurrence: IE)
  Receive Date: 20241220
  Receipt Date: 20241227
  Transmission Date: 20250114
  Serious: Yes (Other)
  Sender: ROCHE
  Company Number: IE-ROCHE-10000149551

PATIENT
  Sex: Female

DRUGS (2)
  1. TOCILIZUMAB [Suspect]
     Active Substance: TOCILIZUMAB
     Indication: Product used for unknown indication
     Route: 058
     Dates: start: 20241203
  2. TOCILIZUMAB [Suspect]
     Active Substance: TOCILIZUMAB

REACTIONS (7)
  - Nausea [Recovering/Resolving]
  - Musculoskeletal stiffness [Recovering/Resolving]
  - Palpitations [Unknown]
  - Tachycardia [Unknown]
  - Diarrhoea [Unknown]
  - Fatigue [Unknown]
  - Ill-defined disorder [Unknown]
